FAERS Safety Report 8817442 (Version 1)
Quarter: 2012Q4

REPORT INFORMATION
  Report Type: 
  Country: GB (occurrence: GB)
  Receive Date: 20121001
  Receipt Date: 20121001
  Transmission Date: 20130627
  Serious: Yes (Other)
  Sender: FDA-Public Use
  Company Number: GB-ASTELLAS-2011EU008714

PATIENT
  Sex: Female
  Weight: 65 kg

DRUGS (1)
  1. VESICARE [Suspect]
     Indication: URGE INCONTINENCE
     Dosage: 5 mg, Unknown/D
     Route: 048
     Dates: end: 201111

REACTIONS (2)
  - Intestinal obstruction [Unknown]
  - Dry mouth [Recovered/Resolved]
